FAERS Safety Report 5142733-8 (Version None)
Quarter: 2006Q4

REPORT INFORMATION
  Report Type: 
  Country: None (occurrence: None)
  Receive Date: 20061102
  Receipt Date: 20061025
  Transmission Date: 20070319
  Serious: Yes (Other)
  Sender: FDA-Public Use
  Company Number: 2006UW20668

PATIENT
  Sex: Female

DRUGS (1)
  1. SEROQUEL [Suspect]
     Route: 048

REACTIONS (10)
  - APATHY [None]
  - ERYTHEMA [None]
  - FATIGUE [None]
  - HYPERTENSION [None]
  - HYPERTONIA [None]
  - OEDEMA PERIPHERAL [None]
  - SELF-INJURIOUS IDEATION [None]
  - UPPER MOTOR NEURONE LESION [None]
  - VISUAL ACUITY REDUCED [None]
  - WEIGHT INCREASED [None]
